FAERS Safety Report 7147883-2 (Version None)
Quarter: 2010Q4

REPORT INFORMATION
  Report Type: 
  Country: None (occurrence: None)
  Receive Date: 20101206
  Receipt Date: 20101206
  Transmission Date: 20110411
  Serious: Yes (Hospitalization)
  Sender: FDA-Public Use
  Company Number: None

PATIENT
  Sex: Female
  Weight: 64.5 kg

DRUGS (4)
  1. CARBOPLATIN [Suspect]
     Dosage: 495 MG
  2. TAXOL [Suspect]
     Dosage: 280 MG
  3. PERCOCET [Concomitant]
  4. TRAMADOL [Concomitant]

REACTIONS (1)
  - LOSS OF CONSCIOUSNESS [None]
